FAERS Safety Report 25866166 (Version 2)
Quarter: 2025Q4

REPORT INFORMATION
  Report Type: Report from Study
  Country: US (occurrence: US)
  Receive Date: 20250930
  Receipt Date: 20251007
  Transmission Date: 20260118
  Serious: Yes (Other)
  Sender: ABBVIE
  Company Number: US-ABBVIE-6481491

PATIENT
  Age: 63 Year
  Sex: Male
  Weight: 93.439 kg

DRUGS (4)
  1. HUMIRA [Suspect]
     Active Substance: ADALIMUMAB
     Indication: Osteoarthritis
     Dosage: FORM STRENGTH: 40 MG
     Route: 058
     Dates: start: 2020, end: 202404
  2. HUMIRA [Suspect]
     Active Substance: ADALIMUMAB
     Indication: Polyarthritis
     Dosage: FORM STRENGTH: 40 MG
     Route: 058
     Dates: start: 202406, end: 20250815
  3. HUMIRA [Suspect]
     Active Substance: ADALIMUMAB
     Indication: Rheumatoid arthritis
  4. METHOTREXATE [Concomitant]
     Active Substance: METHOTREXATE
     Indication: Arthritis

REACTIONS (8)
  - Intervertebral disc protrusion [Recovered/Resolved]
  - Gait inability [Recovered/Resolved]
  - Urticaria [Recovered/Resolved]
  - Back pain [Recovering/Resolving]
  - Pain in extremity [Recovering/Resolving]
  - Fall [Recovered/Resolved]
  - Arthralgia [Recovered/Resolved]
  - Movement disorder [Unknown]

NARRATIVE: CASE EVENT DATE: 20240212
